FAERS Safety Report 23333785 (Version 1)
Quarter: 2023Q4

REPORT INFORMATION
  Report Type: Spontaneous
  Country: US (occurrence: US)
  Receive Date: 20231223
  Receipt Date: 20231223
  Transmission Date: 20240109
  Serious: Yes (Other)
  Sender: FDA-Public Use
  Company Number: US-CELLTRION INC.-2023US024477

PATIENT

DRUGS (3)
  1. ADALIMUMAB [Suspect]
     Active Substance: ADALIMUMAB\ISOPROPYL ALCOHOL
     Indication: Hidradenitis
     Dosage: 160 MG AS LOADING DOSE, DAY 1
  2. ADALIMUMAB [Suspect]
     Active Substance: ADALIMUMAB\ISOPROPYL ALCOHOL
     Dosage: 80 MG, DAY 15
  3. ADALIMUMAB [Suspect]
     Active Substance: ADALIMUMAB\ISOPROPYL ALCOHOL
     Dosage: 40 MG AS MAINTENNANCE DOSE, WEEKLY

REACTIONS (2)
  - Pyoderma gangrenosum [Recovered/Resolved]
  - Paradoxical psoriasis [Recovered/Resolved]
